FAERS Safety Report 8901455 (Version 1)
Quarter: 2012Q4

REPORT INFORMATION
  Report Type: 
  Country: US (occurrence: US)
  Receive Date: 20121108
  Receipt Date: 20121108
  Transmission Date: 20130627
  Serious: No
  Sender: FDA-Public Use
  Company Number: US-ASTRAZENECA-2012SE79140

PATIENT
  Age: 45 Year
  Sex: Female
  Weight: 72.6 kg

DRUGS (5)
  1. LISINOPRIL [Suspect]
     Indication: HYPERTENSION
     Route: 048
     Dates: start: 201108
  2. SEROQUEL XR [Suspect]
     Indication: DEPRESSION
     Route: 048
     Dates: start: 2009
  3. SEROQUEL XR [Suspect]
     Indication: DEPRESSION
     Route: 048
     Dates: start: 2009
  4. CYMBALTA [Concomitant]
     Indication: PANIC ATTACK
     Route: 048
     Dates: start: 2009
  5. CYMBALTA [Concomitant]
     Indication: ANXIETY
     Route: 048
     Dates: start: 2009

REACTIONS (4)
  - Hypertension [Unknown]
  - Cervical dysplasia [Unknown]
  - Insomnia [Unknown]
  - Muscle twitching [Unknown]
